FAERS Safety Report 6420219-8 (Version None)
Quarter: 2009Q4

REPORT INFORMATION
  Report Type: 
  Country: None (occurrence: None)
  Receive Date: 20091029
  Receipt Date: 20091016
  Transmission Date: 20100525
  Serious: Yes (Other)
  Sender: FDA-Public Use
  Company Number: PHEH2009US14310

PATIENT
  Sex: Female

DRUGS (4)
  1. GLEEVEC [Suspect]
  2. CHEMOTHERAPEUTICS NOS [Suspect]
  3. ORAL BLOOD GLUCOSE LOWERING DRUGS [Concomitant]
  4. ANTIHYPERTENSIVE DRUGS [Concomitant]

REACTIONS (2)
  - IMPETIGO [None]
  - RASH [None]
